FAERS Safety Report 8995848 (Version 1)
Quarter: 2013Q1

REPORT INFORMATION
  Report Type: Spontaneous
  Country: CH (occurrence: CH)
  Receive Date: 20130103
  Receipt Date: 20130103
  Transmission Date: 20140127
  Serious: Yes (Other)
  Sender: FDA-Public Use
  Company Number: PHHY2012CH121782

PATIENT
  Age: 12 Year
  Sex: Female
  Weight: 39 kg

DRUGS (1)
  1. TACROLIMUS [Suspect]
     Dosage: 0.26 MG/KG, UNK
     Route: 042

REACTIONS (4)
  - Suicidal ideation [Unknown]
  - Intentional overdose [Unknown]
  - Abdominal pain [Unknown]
  - Headache [Unknown]
